FAERS Safety Report 9824973 (Version 5)
Quarter: 2014Q1

REPORT INFORMATION
  Report Type: Spontaneous
  Country: GB (occurrence: GB)
  Receive Date: 20140117
  Receipt Date: 20140203
  Transmission Date: 20141002
  Serious: Yes (Other)
  Sender: FDA-Public Use
  Company Number: GB-JNJFOC-20140105262

PATIENT
  Sex: Male

DRUGS (2)
  1. NIZORAL [Suspect]
     Route: 061
  2. NIZORAL [Suspect]
     Indication: PRURITUS
     Route: 061

REACTIONS (5)
  - Rash pruritic [Unknown]
  - Blister [Unknown]
  - Seborrhoeic dermatitis [Unknown]
  - Discomfort [Unknown]
  - Rash [Not Recovered/Not Resolved]
